FAERS Safety Report 9531075 (Version 1)
Quarter: 2013Q2

REPORT INFORMATION
  Report Type: Spontaneous
  Country: US (occurrence: None)
  Receive Date: 20130418
  Receipt Date: 20130418
  Transmission Date: 20140414
  Serious: Yes (Other)
  Sender: FDA-Public Use
  Company Number: 1301USA001409

PATIENT
  Age: 14 Year
  Sex: Male

DRUGS (4)
  1. SINGULAIR (MONTELUKAST SODIUM) TABLET [Suspect]
  2. ZYRTEC-D [Suspect]
     Indication: PRODUCT USED FOR UNKNOWN INDICATION
  3. ADVAIR (FLUTICASONE PROPIONATE, SALMETEROL XINAFOATE) [Suspect]
     Dosage: DISKUS 100/50
  4. ALBUTEROL SULFATE (ALBUTEROL SULFATE) [Concomitant]

REACTIONS (8)
  - Convulsion [None]
  - Staring [None]
  - Prescribed overdose [None]
  - Heart rate increased [None]
  - Fatigue [None]
  - Dyspnoea [None]
  - Communication disorder [None]
  - Cardiac disorder [None]
